FAERS Safety Report 24391456 (Version 1)
Quarter: 2024Q4

REPORT INFORMATION
  Report Type: Spontaneous
  Country: CO (occurrence: CO)
  Receive Date: 20241003
  Receipt Date: 20241003
  Transmission Date: 20250115
  Serious: Yes (Other)
  Sender: BAYER
  Company Number: CO-BAYER-2024A139986

PATIENT
  Age: 51 Year
  Sex: Male
  Weight: 78 kg

DRUGS (1)
  1. KOVALTRY [Suspect]
     Active Substance: ANTIHEMOPHILIC FACTOR, HUMAN RECOMBINANT
     Indication: Factor VIII deficiency
     Dosage: 2500 IU
     Route: 042
     Dates: start: 20210301

REACTIONS (3)
  - Haemophilic arthropathy [Unknown]
  - Gingival bleeding [Unknown]
  - Hypertension [Unknown]

NARRATIVE: CASE EVENT DATE: 20210301
